FAERS Safety Report 9315192 (Version 1)
Quarter: 2013Q2

REPORT INFORMATION
  Report Type: Spontaneous
  Country: US (occurrence: US)
  Receive Date: 20130529
  Receipt Date: 20130529
  Transmission Date: 20140414
  Serious: Yes (Other)
  Sender: FDA-Public Use
  Company Number: US-ASTRAZENECA-2013SE24486

PATIENT
  Age: 794 Month
  Sex: Female
  Weight: 50 kg

DRUGS (5)
  1. FASLODEX [Suspect]
     Indication: OESTROGEN RECEPTOR POSITIVE BREAST CANCER
     Route: 030
     Dates: start: 20130408
  2. FASLODEX [Suspect]
     Indication: OESTROGEN RECEPTOR POSITIVE BREAST CANCER
     Dosage: 500 MG DIVIDED INJECTIONS, 250 MG IM IN EACH BUTTOCK
     Route: 030
     Dates: start: 20130409
  3. FASLODEX [Suspect]
     Indication: OESTROGEN RECEPTOR POSITIVE BREAST CANCER
     Dosage: 500 MG DIVIDED INJECTIONS, 250 MG IM IN EACH BUTTOCK
     Route: 030
     Dates: start: 20130423
  4. TAMOXIFEN [Suspect]
     Route: 065
  5. AROMASIN [Concomitant]

REACTIONS (17)
  - Breast cancer [Recovered/Resolved]
  - Discomfort [Unknown]
  - Arthralgia [Unknown]
  - Neuropathy peripheral [Recovering/Resolving]
  - Pain in extremity [Recovered/Resolved]
  - Procedural pain [Not Recovered/Not Resolved]
  - Neuralgia [Not Recovered/Not Resolved]
  - Weight decreased [Not Recovered/Not Resolved]
  - Injection site hyperaesthesia [Not Recovered/Not Resolved]
  - Injection site pain [Not Recovered/Not Resolved]
  - Back pain [Not Recovered/Not Resolved]
  - Decreased appetite [Not Recovered/Not Resolved]
  - Musculoskeletal stiffness [Not Recovered/Not Resolved]
  - Myalgia [Unknown]
  - Headache [Unknown]
  - Paraesthesia [Not Recovered/Not Resolved]
  - Intentional drug misuse [Not Recovered/Not Resolved]
